FAERS Safety Report 4635008-4 (Version None)
Quarter: 2005Q2

REPORT INFORMATION
  Report Type: 
  Country: None (occurrence: None)
  Receive Date: 20050411
  Receipt Date: 20050329
  Transmission Date: 20051028
  Serious: Yes (Hospitalization, Other)
  Sender: FDA-Public Use
  Company Number: 2005050977

PATIENT
  Age: 65 Year
  Sex: Female
  Weight: 85.2762 kg

DRUGS (7)
  1. BEXTRA [Suspect]
     Indication: ARTHRALGIA
     Dosage: 20 MG), ORAL
     Route: 048
     Dates: start: 20050222, end: 20050223
  2. ARTHROTEC [Concomitant]
  3. METOPROLOL TARTRATE [Concomitant]
  4. LEVOTHYROXINE SODIUM [Concomitant]
  5. ATORVASTATIN CALCIUM [Concomitant]
  6. DYAZIDE [Concomitant]
  7. ALLOPURINOL [Concomitant]

REACTIONS (4)
  - CHEST PAIN [None]
  - CORONARY ARTERY OCCLUSION [None]
  - PARAESTHESIA [None]
  - WEIGHT DECREASED [None]
